FAERS Safety Report 7811111-2 (Version None)
Quarter: 2011Q4

REPORT INFORMATION
  Report Type: 
  Country: None (occurrence: None)
  Receive Date: 20111011
  Receipt Date: 20110927
  Transmission Date: 20120403
  Serious: Yes (Life-Threatening)
  Sender: FDA-Public Use
  Company Number: DSM-2011-00867

PATIENT
  Age: 60 Year
  Sex: Female

DRUGS (2)
  1. LEVOTHYROXINE SODIUM [Concomitant]
  2. OLMESARTAN MEDOXOMIL AND HYDROCHLOROTHIZIDE [Suspect]
     Indication: HYPERTENSION
     Dosage: 1 DOSAGE FORMS (1 DOSAGE FORMS, 1 IN 1 D), ORAL
     Route: 048
     Dates: end: 20110715

REACTIONS (9)
  - ALTERED STATE OF CONSCIOUSNESS [None]
  - HYPOKALAEMIA [None]
  - NAUSEA [None]
  - CONVULSION [None]
  - VOMITING [None]
  - AGITATION [None]
  - FALL [None]
  - HYPONATRAEMIA [None]
  - MOBILITY DECREASED [None]
